FAERS Safety Report 9760960 (Version 1)
Quarter: 2013Q4

REPORT INFORMATION
  Report Type: Spontaneous
  Country: IT (occurrence: IT)
  Receive Date: 20131216
  Receipt Date: 20131216
  Transmission Date: 20140711
  Serious: Yes (Hospitalization)
  Sender: FDA-Public Use
  Company Number: IT-PFIZER INC-2013356642

PATIENT
  Age: 85 Year
  Sex: Female

DRUGS (4)
  1. LYRICA [Suspect]
     Indication: DIABETIC NEUROPATHY
     Dosage: 75 MG, DAILY
     Route: 048
     Dates: start: 20130801, end: 20130808
  2. TIKLID [Concomitant]
     Dosage: 500 MG, UNK
     Route: 048
  3. OSSIBUTININA CLORIDRATO MYLAN GENERICS [Concomitant]
     Dosage: 5 MG, UNK
     Route: 048
  4. NORMIX [Concomitant]
     Dosage: 600 MG, UNK
     Route: 048

REACTIONS (5)
  - Confusional state [Recovered/Resolved]
  - Insomnia [Recovered/Resolved]
  - Malaise [Recovered/Resolved]
  - Resting tremor [Recovered/Resolved]
  - Blood count abnormal [Unknown]
